FAERS Safety Report 12626929 (Version 6)
Quarter: 2016Q4

REPORT INFORMATION
  Report Type: Report from Study
  Country: FR (occurrence: FR)
  Receive Date: 20160805
  Receipt Date: 20161228
  Transmission Date: 20170207
  Serious: Yes (Hospitalization)
  Sender: FDA-Public Use
  Company Number: FR-ROCHE-1806746

PATIENT
  Age: 59 Year
  Sex: Female
  Weight: 79 kg

DRUGS (13)
  1. VENETOCLAX [Suspect]
     Active Substance: VENETOCLAX
     Indication: CHRONIC LYMPHOCYTIC LEUKAEMIA
     Route: 048
     Dates: start: 20160711
  2. ARANESP [Concomitant]
     Active Substance: DARBEPOETIN ALFA
     Route: 058
  3. VENETOCLAX [Suspect]
     Active Substance: VENETOCLAX
     Route: 048
     Dates: end: 20160719
  4. VANCOMYCIN [Concomitant]
     Active Substance: VANCOMYCIN
     Indication: INFECTION PROPHYLAXIS
     Route: 065
     Dates: start: 20160621
  5. BENDAMUSTINE [Suspect]
     Active Substance: BENDAMUSTINE
     Indication: CHRONIC LYMPHOCYTIC LEUKAEMIA
     Route: 042
     Dates: start: 20160621, end: 20160719
  6. LEDERFOLINE [Concomitant]
     Active Substance: LEUCOVORIN CALCIUM
     Indication: INFECTION PROPHYLAXIS
     Route: 048
     Dates: start: 20160621
  7. PYOSTACINE [Concomitant]
     Active Substance: PRISTINAMYCIN
     Indication: INFECTION PROPHYLAXIS
     Route: 048
     Dates: start: 20160621, end: 20160621
  8. PYOSTACINE [Concomitant]
     Active Substance: PRISTINAMYCIN
     Dosage: TREATMENT
     Route: 065
  9. BACTRIM [Concomitant]
     Active Substance: SULFAMETHOXAZOLE\TRIMETHOPRIM
     Dosage: 1 TABLET
     Route: 048
     Dates: start: 20160621
  10. RITUXIMAB [Suspect]
     Active Substance: RITUXIMAB
     Indication: CHRONIC LYMPHOCYTIC LEUKAEMIA
     Dosage: 500 MG/M2,1 IN 1 MONTH
     Route: 042
     Dates: start: 20160719, end: 20160719
  11. ZELITREX [Concomitant]
     Active Substance: VALACYCLOVIR HYDROCHLORIDE
     Indication: PROPHYLAXIS
     Route: 048
     Dates: start: 20160621
  12. INEXIUM [Concomitant]
     Active Substance: ESOMEPRAZOLE
     Indication: PROPHYLAXIS
     Route: 048
     Dates: start: 20160620
  13. INNOHEP [Concomitant]
     Active Substance: TINZAPARIN SODIUM
     Route: 058
     Dates: start: 20151201, end: 201605

REACTIONS (2)
  - Tumour lysis syndrome [Recovered/Resolved]
  - Cytokine storm [Recovered/Resolved]

NARRATIVE: CASE EVENT DATE: 20160719
